FAERS Safety Report 14260852 (Version 1)
Quarter: 2017Q4

REPORT INFORMATION
  Report Type: Spontaneous
  Country: US (occurrence: US)
  Receive Date: 20171207
  Receipt Date: 20171207
  Transmission Date: 20180321
  Serious: No
  Sender: FDA-Public Use
  Company Number: US-009507513-1711USA013903

PATIENT
  Age: 66 Year
  Sex: Male

DRUGS (6)
  1. CUBICIN [Suspect]
     Active Substance: DAPTOMYCIN
     Dosage: 10 MG, QD
     Route: 037
  2. GENTAMICIN. [Concomitant]
     Active Substance: GENTAMICIN
     Indication: MENINGITIS ENTEROCOCCAL
     Dosage: 5 MG, QD
     Route: 037
  3. CUBICIN [Suspect]
     Active Substance: DAPTOMYCIN
     Indication: MENINGITIS ENTEROCOCCAL
     Dosage: 10 MG/KG, UNK
  4. CUBICIN [Suspect]
     Active Substance: DAPTOMYCIN
     Dosage: 5 MG, QD
     Route: 037
  5. IVERMECTIN. [Concomitant]
     Active Substance: IVERMECTIN
     Indication: STRONGYLOIDIASIS
     Dosage: 9 G, QD
  6. LINEZOLID. [Concomitant]
     Active Substance: LINEZOLID
     Indication: MENINGITIS ENTEROCOCCAL
     Dosage: 600 MG, TWICE A DAY

REACTIONS (2)
  - Product use in unapproved indication [Unknown]
  - Product use issue [Unknown]
